FAERS Safety Report 8799699 (Version 1)
Quarter: 2012Q4

REPORT INFORMATION
  Report Type: 
  Country: NL (occurrence: NL)
  Receive Date: 20120919
  Receipt Date: 20120919
  Transmission Date: 20130627
  Serious: Yes (Other)
  Sender: FDA-Public Use
  Company Number: NL-AMGEN-NLDSP2012058205

PATIENT
  Age: 43 Year
  Sex: Male

DRUGS (4)
  1. ENBREL [Suspect]
     Indication: RHEUMATOID ARTHRITIS
     Dosage: 50 mg, weekly
     Dates: start: 20081101
  2. ENBREL [Suspect]
     Dosage: 50 mg every 10-12days
  3. ARAVA [Concomitant]
     Dosage: UNK
  4. PREDNISON [Concomitant]
     Dosage: UNK

REACTIONS (2)
  - Eye inflammation [Recovered/Resolved]
  - Respiratory tract infection [Recovered/Resolved]
